FAERS Safety Report 22033894 (Version 3)
Quarter: 2023Q4

REPORT INFORMATION
  Report Type: Report from Study
  Country: US (occurrence: US)
  Receive Date: 20230224
  Receipt Date: 20231221
  Transmission Date: 20240110
  Serious: Yes (Hospitalization)
  Sender: FDA-Public Use
  Company Number: US-JAZZ PHARMACEUTICALS-2023-US-004221

PATIENT
  Sex: Female

DRUGS (5)
  1. XYREM [Suspect]
     Active Substance: SODIUM OXYBATE
     Indication: Narcolepsy
     Dosage: UNK
  2. XYREM [Suspect]
     Active Substance: SODIUM OXYBATE
     Indication: Cataplexy
  3. XYREM [Suspect]
     Active Substance: SODIUM OXYBATE
     Indication: Somnolence
  4. SUMATRIPTAN SUCCINATE [Concomitant]
     Active Substance: SUMATRIPTAN SUCCINATE
     Indication: Product used for unknown indication
     Dosage: UNK
     Dates: start: 20151228
  5. DESIPRAMINE [Concomitant]
     Active Substance: DESIPRAMINE
     Indication: Cataplexy
     Dosage: UNK
     Dates: start: 20151228

REACTIONS (5)
  - Surgery [Unknown]
  - Hepatic enzyme abnormal [Recovered/Resolved]
  - Urinary tract infection [Unknown]
  - Alopecia [Unknown]
  - COVID-19 [Unknown]
